FAERS Safety Report 17095043 (Version 1)
Quarter: 2019Q4

REPORT INFORMATION
  Report Type: Spontaneous
  Country: US (occurrence: US)
  Receive Date: 20191102
  Receipt Date: 20191102
  Transmission Date: 20200122
  Serious: No
  Sender: FDA-Public Use
  Company Number: None

PATIENT
  Age: 16 Year
  Sex: Female

DRUGS (1)
  1. TOBRAMYCIN NEB 300MG/5ML [Suspect]
     Active Substance: TOBRAMYCIN
     Indication: TRACHEITIS
     Dosage: ?          OTHER DOSE:300MG/5ML;?
     Route: 055
     Dates: start: 201909

REACTIONS (1)
  - Off label use [None]

NARRATIVE: CASE EVENT DATE: 20191102
